FAERS Safety Report 5963615-5 (Version None)
Quarter: 2008Q4

REPORT INFORMATION
  Report Type: 
  Country: None (occurrence: None)
  Receive Date: 20081124
  Receipt Date: 20081114
  Transmission Date: 20090506
  Serious: Yes (Hospitalization)
  Sender: FDA-Public Use
  Company Number: FR-ROCHE-597552

PATIENT
  Sex: Male
  Weight: 63 kg

DRUGS (15)
  1. INTERFERON ALFA-2A [Suspect]
     Indication: METASTATIC RENAL CELL CARCINOMA
     Dosage: DOSE: 09 MUI
     Route: 065
     Dates: start: 20080922, end: 20081103
  2. BEVACIZUMAB [Suspect]
     Indication: METASTATIC RENAL CELL CARCINOMA
     Route: 065
     Dates: start: 20080920, end: 20081103
  3. DEXTROPROPOXYPHENE [Concomitant]
     Dates: start: 20080920
  4. ALFUZOSINE [Concomitant]
     Dates: start: 19910101
  5. PROSCAR [Concomitant]
     Dates: start: 19910101
  6. DURAGESIC-100 [Concomitant]
     Dates: start: 20080916
  7. PARENTERAL NUTRITION STUDY DRUG [Concomitant]
     Dates: start: 20080918
  8. PERFALGAN [Concomitant]
     Dates: start: 20080922, end: 20080923
  9. PERFALGAN [Concomitant]
     Dates: start: 20080926
  10. BIONOLYTE [Concomitant]
     Dates: start: 20080923, end: 20080923
  11. MOVICOL [Concomitant]
     Dates: start: 20080925
  12. ZOPHREN [Concomitant]
     Dates: start: 20080923, end: 20080927
  13. PRIMPERAN [Concomitant]
     Dosage: INDICATION: NAUSEA, VOMITING
     Dates: start: 20080925
  14. VOGALENE [Concomitant]
     Dosage: INDICATION: NAUSEA, VOMITING
     Dates: start: 20080929
  15. INIPOMP [Concomitant]
     Dates: start: 20081027

REACTIONS (1)
  - GENERAL PHYSICAL HEALTH DETERIORATION [None]
